FAERS Safety Report 8552963-0 (Version None)
Quarter: 2012Q3

REPORT INFORMATION
  Report Type: 
  Country: None (occurrence: None)
  Receive Date: 20120731
  Receipt Date: 20120726
  Transmission Date: 20120928
  Serious: Yes (Death, Hospitalization)
  Sender: FDA-Public Use
  Company Number: US-BRACCO-008237

PATIENT
  Age: 58 Year
  Sex: Male

DRUGS (9)
  1. ISOVUE-M 200 [Suspect]
     Indication: SPINAL MYELOGRAM
     Route: 037
     Dates: start: 20120622, end: 20120622
  2. CYMBALTA [Concomitant]
  3. PRILOSEC [Concomitant]
  4. PRAVASTATIN [Concomitant]
  5. ISOVUE-M 200 [Suspect]
     Indication: ARTHRALGIA
     Route: 037
     Dates: start: 20120622, end: 20120622
  6. CELEBREX [Concomitant]
  7. LYRICA [Concomitant]
  8. ISOVUE-M 200 [Suspect]
     Indication: SPINAL PAIN
     Route: 037
     Dates: start: 20120622, end: 20120622
  9. LISINOPRIL [Concomitant]

REACTIONS (7)
  - SUBARACHNOID HAEMORRHAGE [None]
  - HYPERTENSION [None]
  - NEUROTOXICITY [None]
  - HYDROCEPHALUS [None]
  - HYPERHIDROSIS [None]
  - BRAIN OEDEMA [None]
  - MENINGITIS CHEMICAL [None]
